FAERS Safety Report 11123416 (Version 1)
Quarter: 2015Q2

REPORT INFORMATION
  Report Type: Spontaneous
  Country: US (occurrence: US)
  Receive Date: 20150519
  Receipt Date: 20150519
  Transmission Date: 20150821
  Serious: No
  Sender: FDA-Public Use
  Company Number: US-AUXILIUM PHARMACEUTICALS INC.-201503184

PATIENT
  Sex: Male

DRUGS (4)
  1. TESTOSTERONE. [Concomitant]
     Active Substance: TESTOSTERONE
  2. METHOTREXATE [Concomitant]
     Active Substance: METHOTREXATE
  3. XIAFLEX [Suspect]
     Active Substance: COLLAGENASE CLOSTRIDIUM HISTOLYTICUM
     Indication: PEYRONIE^S DISEASE
     Route: 026
  4. ENBREL [Concomitant]
     Active Substance: ETANERCEPT

REACTIONS (1)
  - Injection site bruising [Unknown]
